FAERS Safety Report 7283808-7 (Version None)
Quarter: 2011Q1

REPORT INFORMATION
  Report Type: 
  Country: None (occurrence: None)
  Receive Date: 20110209
  Receipt Date: 20110128
  Transmission Date: 20110831
  Serious: Yes (Hospitalization, Other)
  Sender: FDA-Public Use
  Company Number: US-MERCK-1012USA01749

PATIENT
  Age: 83 Year
  Sex: Female
  Weight: 83 kg

DRUGS (2)
  1. COREG [Concomitant]
     Route: 065
  2. HYZAAR [Suspect]
     Indication: HYPERTENSION
     Route: 048
     Dates: start: 20031201, end: 20101020

REACTIONS (12)
  - URINARY TRACT INFECTION [None]
  - SEPSIS [None]
  - CARDIOMEGALY [None]
  - EYE DISORDER [None]
  - CARDIAC DISORDER [None]
  - UTERINE DISORDER [None]
  - ATRIAL FIBRILLATION [None]
  - HYPOTHYROIDISM [None]
  - BRONCHOSPASM [None]
  - BRONCHITIS [None]
  - JOINT EFFUSION [None]
  - HYPONATRAEMIA [None]
